FAERS Safety Report 10971388 (Version 1)
Quarter: 2015Q1

REPORT INFORMATION
  Report Type: Spontaneous
  Country: US (occurrence: US)
  Receive Date: 20150331
  Receipt Date: 20150331
  Transmission Date: 20150721
  Serious: No
  Sender: FDA-Public Use
  Company Number: US-BAUSCH-BL-2014-003816

PATIENT
  Age: 76 Year
  Sex: Female

DRUGS (7)
  1. PROLENSA [Interacting]
     Active Substance: BROMFENAC SODIUM
     Dosage: LEFT EYE
     Dates: start: 20140803
  2. PRED FORTE [Interacting]
     Active Substance: PREDNISOLONE ACETATE
     Indication: PRODUCT USED FOR UNKNOWN INDICATION
     Dosage: RIGHT EYE
     Dates: start: 20140615
  3. CIPROFLOXACIN. [Interacting]
     Active Substance: CIPROFLOXACIN
     Dosage: LEFT EYE
     Dates: start: 20140806
  4. POLYMYXIN B SULFATE AND TRIMETHOPRIM [Suspect]
     Active Substance: POLYMYXIN B SULFATE\TRIMETHOPRIM SULFATE
     Indication: PROPHYLAXIS
     Route: 047
     Dates: start: 20140615, end: 20140618
  5. PROLENSA [Interacting]
     Active Substance: BROMFENAC SODIUM
     Indication: PRODUCT USED FOR UNKNOWN INDICATION
     Dosage: RIGHT EYE
     Dates: start: 20140615
  6. CIPROFLOXACIN. [Interacting]
     Active Substance: CIPROFLOXACIN
     Indication: PRODUCT USED FOR UNKNOWN INDICATION
     Dosage: RIGHT EYE
     Dates: start: 20140618, end: 20140702
  7. PRED FORTE [Interacting]
     Active Substance: PREDNISOLONE ACETATE
     Dosage: LEFT EYE
     Dates: start: 20140803

REACTIONS (5)
  - Eye pain [Recovered/Resolved]
  - Erythema [Recovered/Resolved]
  - Eye swelling [Recovered/Resolved]
  - Eye pruritus [Recovered/Resolved]
  - Vision blurred [Recovered/Resolved]

NARRATIVE: CASE EVENT DATE: 2014
